FAERS Safety Report 23336621 (Version 3)
Quarter: 2024Q1

REPORT INFORMATION
  Report Type: Report from Study
  Country: US (occurrence: US)
  Receive Date: 20231226
  Receipt Date: 20240105
  Transmission Date: 20240410
  Serious: No
  Sender: FDA-Public Use
  Company Number: US-ABBVIE-5547474

PATIENT
  Age: 32 Year
  Sex: Male

DRUGS (1)
  1. SKYRIZI [Suspect]
     Active Substance: RISANKIZUMAB-RZAA
     Indication: Psoriasis
     Route: 058
     Dates: start: 20231214

REACTIONS (4)
  - Syncope [Unknown]
  - Hypotension [Unknown]
  - Pallor [Unknown]
  - Fall [Unknown]

NARRATIVE: CASE EVENT DATE: 20231214
